FAERS Safety Report 7760717-8 (Version None)
Quarter: 2011Q3

REPORT INFORMATION
  Report Type: 
  Country: None (occurrence: None)
  Receive Date: 20110919
  Receipt Date: 20110913
  Transmission Date: 20111222
  Serious: Yes (Other)
  Sender: FDA-Public Use
  Company Number: US-AMGEN-USASP2011046987

PATIENT
  Age: 84 Year
  Sex: Female

DRUGS (4)
  1. PROLIA [Suspect]
     Indication: OSTEOPOROSIS POSTMENOPAUSAL
     Dosage: UNK UNK, Q6MO
     Route: 058
     Dates: start: 20110101
  2. DEXILANT [Concomitant]
  3. RESTORIL [Concomitant]
  4. MULTIPLE VITAMINS [Concomitant]

REACTIONS (3)
  - SENSATION OF HEAVINESS [None]
  - MUSCULAR WEAKNESS [None]
  - HYPOAESTHESIA [None]
